FAERS Safety Report 22085171 (Version 2)
Quarter: 2023Q4

REPORT INFORMATION
  Report Type: Spontaneous
  Country: FR (occurrence: FR)
  Receive Date: 20230310
  Receipt Date: 20231109
  Transmission Date: 20240110
  Serious: Yes (Life-Threatening, Other)
  Sender: FDA-Public Use
  Company Number: None

PATIENT
  Age: 31 Year
  Sex: Female
  Weight: 135 kg

DRUGS (6)
  1. SUFENTANIL [Suspect]
     Active Substance: SUFENTANIL
     Indication: Anaesthesia
     Dosage: 30 MICROGRAM 1 TOTAL
     Route: 042
     Dates: start: 20230207, end: 20230207
  2. CEFAZOLIN SODIUM [Suspect]
     Active Substance: CEFAZOLIN SODIUM
     Indication: Antibiotic prophylaxis
     Dosage: 4 GRAM 1 TOTAL
     Route: 042
     Dates: start: 20230207, end: 20230207
  3. DEXAMETHASONE [Suspect]
     Active Substance: DEXAMETHASONE
     Indication: Anaesthesia
     Dosage: 8 MILLIGRAM 1 TOTAL
     Route: 042
     Dates: start: 20230207, end: 20230207
  4. KETAMINE [Suspect]
     Active Substance: KETAMINE
     Indication: Anaesthesia
     Dosage: 40 MILLIGRAM 1 TOTAL
     Route: 042
     Dates: start: 20230207, end: 20230207
  5. ROCURONIUM [Suspect]
     Active Substance: ROCURONIUM BROMIDE
     Indication: Anaesthesia
     Dosage: 70 MILLIGRAM 1 TOTAL
     Route: 042
     Dates: start: 20230207, end: 20230207
  6. PROPOFOL LIPURO [Suspect]
     Active Substance: PROPOFOL
     Indication: Anaesthesia
     Dosage: 300 MILLIGRAM 1 TOTAL
     Route: 042
     Dates: start: 20230207, end: 20230207

REACTIONS (1)
  - Anaphylactic shock [Recovered/Resolved]

NARRATIVE: CASE EVENT DATE: 20230207
